FAERS Safety Report 5788078-4 (Version None)
Quarter: 2008Q2

REPORT INFORMATION
  Report Type: 
  Country: None (occurrence: None)
  Receive Date: 20080625
  Receipt Date: 20080624
  Transmission Date: 20081010
  Serious: Yes (Other)
  Sender: FDA-Public Use
  Company Number: US-ASTRAZENECA-2008UW09081

PATIENT
  Age: 16891 Day
  Sex: Male
  Weight: 79.5 kg

DRUGS (8)
  1. SEROQUEL [Suspect]
     Indication: MANIA
     Route: 048
     Dates: start: 20080228, end: 20080101
  2. SEROQUEL [Suspect]
     Indication: DEPRESSION
     Route: 048
     Dates: start: 20080228, end: 20080101
  3. SEROQUEL [Suspect]
     Dosage: LOWER DOSE
     Route: 048
     Dates: start: 20080101, end: 20080101
  4. SEROQUEL [Suspect]
     Dosage: LOWER DOSE
     Route: 048
     Dates: start: 20080101, end: 20080101
  5. SEROQUEL [Suspect]
     Route: 048
     Dates: start: 20080101
  6. SEROQUEL [Suspect]
     Route: 048
     Dates: start: 20080101
  7. ABILIFY [Suspect]
     Indication: BIPOLAR DISORDER
     Dates: start: 20070228, end: 20080420
  8. TRILEPTAL [Concomitant]
     Indication: BIPOLAR DISORDER
     Route: 048
     Dates: start: 20070130

REACTIONS (1)
  - ANURIA [None]
